FAERS Safety Report 8422397-8 (Version None)
Quarter: 2012Q2

REPORT INFORMATION
  Report Type: 
  Country: None (occurrence: None)
  Receive Date: 20120608
  Receipt Date: 20120604
  Transmission Date: 20120825
  Serious: Yes (Death, Hospitalization, Other)
  Sender: FDA-Public Use
  Company Number: PHEH2012US009375

PATIENT
  Sex: Female

DRUGS (12)
  1. MOM SUSPENSION [Concomitant]
     Indication: CONSTIPATION
     Dosage: 30 ML, BID
  2. ACETAMINOPHEN [Concomitant]
     Indication: PAIN
     Dosage: 650 MG, Q4H
  3. AMPYRA [Concomitant]
     Indication: MULTIPLE SCLEROSIS
     Dosage: 10 MG, TID
  4. XOPENEX [Concomitant]
     Indication: DYSPNOEA
     Dosage: 125 MG, Q4H
  5. LACTINEX [Concomitant]
     Indication: SUPPLEMENTATION THERAPY
     Dosage: 1 DF, QID
  6. IBUPROFEN [Concomitant]
     Indication: PAIN
     Dosage: 200 ML, Q6H
  7. ARICEPT [Concomitant]
     Indication: MEMORY IMPAIRMENT
     Dosage: 10 MG, QD
  8. XANAX [Concomitant]
     Indication: ANXIETY
     Dosage: 0.5 MG, Q12H
  9. HYDROMORPHONE HYDROCHLORIDE [Concomitant]
     Indication: PAIN
     Dosage: 1 MG, UNK
  10. ZONEGRAN [Concomitant]
     Indication: TREMOR
     Dosage: 100 MG, QHS
  11. GILENYA [Suspect]
     Indication: RELAPSING-REMITTING MULTIPLE SCLEROSIS
     Dosage: 0.5 MG, QD
     Route: 048
     Dates: start: 20110325, end: 20110715
  12. TRAMADOL HCL [Concomitant]
     Indication: PAIN
     Dosage: 50 MG, QD

REACTIONS (7)
  - URINE OUTPUT DECREASED [None]
  - DRUG INEFFECTIVE [None]
  - DEPRESSION [None]
  - MULTIPLE SCLEROSIS [None]
  - PYREXIA [None]
  - URINARY TRACT INFECTION [None]
  - STAPHYLOCOCCAL INFECTION [None]
